FAERS Safety Report 8058569-4 (Version None)
Quarter: 2012Q1

REPORT INFORMATION
  Report Type: 
  Country: None (occurrence: None)
  Receive Date: 20120120
  Receipt Date: 20120117
  Transmission Date: 20120608
  Serious: Yes (Other)
  Sender: FDA-Public Use
  Company Number: JP-PFIZER INC-2012010185

PATIENT
  Age: 1 Year
  Sex: Female

DRUGS (2)
  1. RISPERIDONE [Suspect]
     Dosage: UNK
     Dates: start: 20120114
  2. ALPRAZOLAM [Suspect]
     Dosage: UNK
     Dates: start: 20120114

REACTIONS (3)
  - ALTERED STATE OF CONSCIOUSNESS [None]
  - ACCIDENTAL DRUG INTAKE BY CHILD [None]
  - DIZZINESS [None]
